FAERS Safety Report 9863415 (Version 1)
Quarter: 2014Q1

REPORT INFORMATION
  Report Type: Spontaneous
  Country: IT (occurrence: IT)
  Receive Date: 20140203
  Receipt Date: 20140203
  Transmission Date: 20141002
  Serious: Yes (Other)
  Sender: FDA-Public Use
  Company Number: IT-ROXANE LABORATORIES, INC.-2014-RO-00121RO

PATIENT
  Age: 52 Year
  Sex: Female

DRUGS (3)
  1. PREDNISONE [Suspect]
     Indication: ANAPHYLACTIC REACTION
     Route: 048
     Dates: end: 20130312
  2. FINGOLIMOD [Suspect]
     Indication: MULTIPLE SCLEROSIS RELAPSE
     Dates: start: 20130422
  3. METHYLPREDNISOLONE [Suspect]
     Indication: ANAPHYLACTIC REACTION
     Route: 042

REACTIONS (3)
  - Varicella [Recovered/Resolved]
  - Leukopenia [Unknown]
  - Lymphopenia [Unknown]
